FAERS Safety Report 14111789 (Version 1)
Quarter: 2017Q4

REPORT INFORMATION
  Report Type: Spontaneous
  Country: US (occurrence: US)
  Receive Date: 20171020
  Receipt Date: 20171020
  Transmission Date: 20180321
  Serious: Yes (Other)
  Sender: FDA-Public Use
  Company Number: None

PATIENT
  Age: 76 Year
  Sex: Female
  Weight: 75.6 kg

DRUGS (11)
  1. CALTRATE [Concomitant]
     Active Substance: CALCIUM CARBONATE
  2. TOPROL XL [Concomitant]
     Active Substance: METOPROLOL SUCCINATE
  3. TRAZODONE HCL TAB 50 MG [Suspect]
     Active Substance: TRAZODONE HYDROCHLORIDE
     Indication: SLEEP DISORDER
     Dosage: ?          QUANTITY:90 TABLET(S);?
     Route: 048
     Dates: end: 20171013
  4. COQ10 [Concomitant]
     Active Substance: UBIDECARENONE
  5. ACTIVELLA [Concomitant]
     Active Substance: ESTRADIOL\NORETHINDRONE ACETATE
  6. ASPIRIN. [Concomitant]
     Active Substance: ASPIRIN
  7. RYTHMOL [Concomitant]
     Active Substance: PROPAFENONE HYDROCHLORIDE
  8. CENTRUM SILVER WOMEN VITAMIN [Concomitant]
  9. CALCIUM [Concomitant]
     Active Substance: CALCIUM
  10. VITAMIN C [Concomitant]
     Active Substance: ASCORBIC ACID
  11. VITAMIN D3 [Concomitant]
     Active Substance: CHOLECALCIFEROL

REACTIONS (14)
  - Visual impairment [None]
  - Urinary incontinence [None]
  - Dry eye [None]
  - Palpitations [None]
  - Muscular weakness [None]
  - Mass [None]
  - Initial insomnia [None]
  - Sinus pain [None]
  - Dysstasia [None]
  - Ear discomfort [None]
  - Eye pruritus [None]
  - Rhinalgia [None]
  - Headache [None]
  - Hallucination [None]

NARRATIVE: CASE EVENT DATE: 20171012
